FAERS Safety Report 5859194-3 (Version None)
Quarter: 2008Q3

REPORT INFORMATION
  Report Type: 
  Country: None (occurrence: None)
  Receive Date: 20080825
  Receipt Date: 20080821
  Transmission Date: 20090109
  Serious: Yes (Death, Other)
  Sender: FDA-Public Use
  Company Number: 2008SP001068

PATIENT
  Age: 60 Year
  Sex: Female
  Weight: 76 kg

DRUGS (14)
  1. TEMODAL [Suspect]
     Indication: GLIOBLASTOMA MULTIFORME
     Dosage: 75 MG/M2 QD PO ; 150 MG/M2 QD PO
     Route: 048
     Dates: start: 20070120, end: 20070301
  2. TEMODAL [Suspect]
     Indication: GLIOBLASTOMA MULTIFORME
     Dosage: 75 MG/M2 QD PO ; 150 MG/M2 QD PO
     Route: 048
     Dates: start: 20070327, end: 20070331
  3. TEMODAL [Suspect]
     Indication: GLIOBLASTOMA MULTIFORME
     Dosage: 75 MG/M2 QD PO ; 150 MG/M2 QD PO
     Route: 048
     Dates: start: 20070424, end: 20070428
  4. TEMODAL [Suspect]
     Indication: GLIOBLASTOMA MULTIFORME
     Dosage: 75 MG/M2 QD PO ; 150 MG/M2 QD PO
     Route: 048
     Dates: start: 20070523, end: 20070527
  5. TEMODAL [Suspect]
     Indication: GLIOBLASTOMA MULTIFORME
     Dosage: 75 MG/M2 QD PO ; 150 MG/M2 QD PO
     Route: 048
     Dates: start: 20070620, end: 20070624
  6. COTRIM [Concomitant]
  7. KYTRIL [Concomitant]
  8. TEGRETOL [Concomitant]
  9. GASTER D [Concomitant]
  10. DEPAS [Concomitant]
  11. LIVALO [Concomitant]
  12. GLYCEOL [Concomitant]
  13. STRONGER NEO MINOPHAGEN C [Concomitant]
  14. TATHION [Concomitant]

REACTIONS (3)
  - CONDITION AGGRAVATED [None]
  - DISEASE PROGRESSION [None]
  - HYDROCEPHALUS [None]
